FAERS Safety Report 13038280 (Version 2)
Quarter: 2016Q4

REPORT INFORMATION
  Report Type: Spontaneous
  Country: US (occurrence: US)
  Receive Date: 20161219
  Receipt Date: 20161227
  Transmission Date: 20170207
  Serious: Yes (Death, Hospitalization, Other)
  Sender: FDA-Public Use
  Company Number: US-CIPLA LTD.-2016US23451

PATIENT

DRUGS (1)
  1. LEVOFLOXACIN. [Suspect]
     Active Substance: LEVOFLOXACIN
     Dosage: UNK
     Route: 065

REACTIONS (7)
  - Metastases to lung [Fatal]
  - Lymphangiosis carcinomatosa [Fatal]
  - Thrombotic microangiopathy [Fatal]
  - Adenocarcinoma gastric [Fatal]
  - Pulmonary hypertension [Unknown]
  - Disease progression [Unknown]
  - Cardiac arrest [Fatal]
